FAERS Safety Report 17260771 (Version 3)
Quarter: 2020Q4

REPORT INFORMATION
  Report Type: Spontaneous
  Country: JP (occurrence: JP)
  Receive Date: 20200113
  Receipt Date: 20201123
  Transmission Date: 20210113
  Serious: Yes (Life-Threatening, Hospitalization, Other)
  Sender: FDA-Public Use
  Company Number: JP-009507513-2001JPN000843J

PATIENT
  Age: 58 Year
  Sex: Male

DRUGS (2)
  1. INTRON A [Suspect]
     Active Substance: INTERFERON ALFA-2B
     Indication: HEPATITIS C
     Dosage: 3 MILLION UNITS / DAY
     Route: 030
     Dates: start: 20040210, end: 20190322
  2. REBETOL [Suspect]
     Active Substance: RIBAVIRIN
     Indication: HEPATITIS C
     Dosage: 200-400MG, BID
     Route: 048
     Dates: start: 20040210, end: 20190322

REACTIONS (1)
  - Liver transplant rejection [Recovering/Resolving]

NARRATIVE: CASE EVENT DATE: 20040416
